FAERS Safety Report 24744811 (Version 1)
Quarter: 2024Q4

REPORT INFORMATION
  Report Type: Spontaneous
  Country: BR (occurrence: BR)
  Receive Date: 20241217
  Receipt Date: 20241217
  Transmission Date: 20250115
  Serious: Yes (Other)
  Sender: TAKEDA
  Company Number: BR-TAKEDA-2024TUS124441

PATIENT
  Sex: Male

DRUGS (2)
  1. DEXILANT [Suspect]
     Active Substance: DEXLANSOPRAZOLE
     Indication: Product used for unknown indication
     Dosage: UNK
  2. VONOPRAZAN FUMARATE [Suspect]
     Active Substance: VONOPRAZAN FUMARATE
     Indication: Gastritis
     Dosage: UNK

REACTIONS (18)
  - Hepatitis [Unknown]
  - Liver disorder [Unknown]
  - Fatigue [Unknown]
  - Faeces discoloured [Unknown]
  - Wrong technique in product usage process [Unknown]
  - Nervousness [Unknown]
  - Product use in unapproved indication [Unknown]
  - Malaise [Unknown]
  - Taste disorder [Unknown]
  - Pain [Unknown]
  - Blood bilirubin increased [Unknown]
  - Dizziness [Unknown]
  - Abdominal pain upper [Unknown]
  - Decreased appetite [Unknown]
  - Vomiting [Unknown]
  - Flatulence [Unknown]
  - Nausea [Unknown]
  - Diarrhoea [Unknown]
